FAERS Safety Report 24686722 (Version 2)
Quarter: 2025Q3

REPORT INFORMATION
  Report Type: Spontaneous
  Country: EU (occurrence: EU)
  Receive Date: 20241202
  Receipt Date: 20250810
  Transmission Date: 20251020
  Serious: Yes (Other)
  Sender: ALEXION PHARMACEUTICALS
  Company Number: EU-AstraZeneca-2024-294696

PATIENT
  Age: 68 Year
  Sex: Male

DRUGS (1)
  1. XIGDUO XR [Suspect]
     Active Substance: DAPAGLIFLOZIN PROPANEDIOL\METFORMIN HYDROCHLORIDE
     Indication: Product used for unknown indication
     Dosage: UNK, BID

REACTIONS (7)
  - Carotid artery disease [Unknown]
  - Pollakiuria [Unknown]
  - Heart rate decreased [Unknown]
  - Heart rate increased [Unknown]
  - Product dose omission issue [Unknown]
  - Hypertension [Unknown]
  - COVID-19 [Unknown]
